FAERS Safety Report 12371959 (Version 1)
Quarter: 2016Q2

REPORT INFORMATION
  Report Type: Not Available
  Country: None (occurrence: TR)
  Receive Date: 20160516
  Receipt Date: 20160516
  Transmission Date: 20160815
  Serious: Yes (Hospitalization)
  Sender: FDA-Public Use
  Company Number: TR-AKORN-14250

PATIENT
  Age: 7 Month
  Sex: Male

DRUGS (1)
  1. CLOBETASOL PROPIONATE OINTMENT, USP, 0.05% [Suspect]
     Active Substance: CLOBETASOL PROPIONATE

REACTIONS (1)
  - Cushing^s syndrome [Recovered/Resolved]
